FAERS Safety Report 17246871 (Version 7)
Quarter: 2020Q1

REPORT INFORMATION
  Report Type: Spontaneous
  Country: US (occurrence: US)
  Receive Date: 20200108
  Receipt Date: 20200221
  Transmission Date: 20200409
  Serious: Yes (Hospitalization)
  Sender: FDA-Public Use
  Company Number: US-PFIZER INC-2020004933

PATIENT
  Age: 79 Year
  Sex: Female
  Weight: 72.57 kg

DRUGS (13)
  1. PROLIA [Concomitant]
     Active Substance: DENOSUMAB
     Indication: OSTEOPOROSIS
     Dosage: UNK [INJECTION EVERY 6 MONTHS]
  2. ROSUVASTATIN. [Concomitant]
     Active Substance: ROSUVASTATIN
     Indication: BLOOD CHOLESTEROL ABNORMAL
     Dosage: 40 MG, 1X/DAY
     Route: 048
  3. CENTRUM SILVER [ASCORBIC ACID;CALCIUM;MINERALS NOS;RETINOL;TOCOPHERYL [Concomitant]
     Dosage: UNK
  4. ECOTRIN [Concomitant]
     Active Substance: ASPIRIN
     Dosage: 81 MG, 1X/DAY
  5. TOVIAZ [Suspect]
     Active Substance: FESOTERODINE FUMARATE
     Indication: HYPERTONIC BLADDER
     Dosage: 4 MG, UNK
     Route: 048
     Dates: start: 2015
  6. PEPCID [Concomitant]
     Active Substance: FAMOTIDINE
     Dosage: UNK, 1X/DAY
  7. TOVIAZ [Suspect]
     Active Substance: FESOTERODINE FUMARATE
     Dosage: 8 MG, 1X/DAY (IN THE EVENING/BEFORE BED TIME)
     Route: 048
     Dates: start: 2018, end: 201908
  8. PROLIA [Concomitant]
     Active Substance: DENOSUMAB
     Dosage: UNK; (PROLIA INJECTION TWICE A YEAR)
  9. VIT D [Concomitant]
     Active Substance: VITAMIN D NOS
     Dosage: UNK
  10. VITAMIN B12 [Concomitant]
     Active Substance: CYANOCOBALAMIN
     Dosage: UNK
  11. CITRACAL CALCIUM PEARLS + D3 [Concomitant]
     Indication: VITAMIN SUPPLEMENTATION
     Dosage: UNK
  12. BYSTOLIC [Concomitant]
     Active Substance: NEBIVOLOL HYDROCHLORIDE
     Indication: BLOOD PRESSURE ABNORMAL
     Dosage: 5 MG, 1X/DAY
     Route: 048
  13. BRIMONIDINE [Concomitant]
     Active Substance: BRIMONIDINE TARTRATE
     Indication: GLAUCOMA
     Dosage: 2 GTT, 2X/DAY [1 DROP IN EACH EYE TWICE A DAY]
     Route: 047
     Dates: end: 20200120

REACTIONS (7)
  - Pollakiuria [Not Recovered/Not Resolved]
  - Therapeutic product effect decreased [Not Recovered/Not Resolved]
  - Body height decreased [Not Recovered/Not Resolved]
  - Vulvovaginal pruritus [Unknown]
  - Dry mouth [Unknown]
  - Plantar fasciitis [Unknown]
  - Vulvovaginal burning sensation [Unknown]
